FAERS Safety Report 5854256-9 (Version None)
Quarter: 2008Q3

REPORT INFORMATION
  Report Type: 
  Country: None (occurrence: None)
  Receive Date: 20080822
  Receipt Date: 20080818
  Transmission Date: 20090109
  Serious: Yes (Hospitalization)
  Sender: FDA-Public Use
  Company Number: PHHY2008FR18505

PATIENT
  Age: 62 Year
  Sex: Female

DRUGS (5)
  1. VALSARTAN [Suspect]
     Indication: HYPERTENSION
     Dosage: 160 MG, QD
     Route: 048
     Dates: end: 20080506
  2. GLUCOPHAGE [Suspect]
     Indication: TYPE 2 DIABETES MELLITUS
     Dosage: 850 MG, TID
     Route: 048
     Dates: end: 20080506
  3. FUROSEMIDE [Concomitant]
     Indication: HYPERTENSION
     Dosage: 40 MG, QD
     Route: 048
  4. OMEPRAZOLE [Concomitant]
  5. UMULINE [Concomitant]
     Indication: TYPE 2 DIABETES MELLITUS
     Dosage: 3 IU, BID

REACTIONS (16)
  - BLOOD CREATININE INCREASED [None]
  - BLOOD POTASSIUM INCREASED [None]
  - BLOOD PRESSURE DECREASED [None]
  - BLOOD UREA INCREASED [None]
  - BODY TEMPERATURE DECREASED [None]
  - CARDIAC ARREST [None]
  - CARDIAC MASSAGE [None]
  - DEHYDRATION [None]
  - DIARRHOEA [None]
  - ENDOTRACHEAL INTUBATION [None]
  - HYPERGLYCAEMIA [None]
  - LACTIC ACIDOSIS [None]
  - MECHANICAL VENTILATION [None]
  - MYDRIASIS [None]
  - RENAL FAILURE ACUTE [None]
  - VOMITING [None]
